FAERS Safety Report 8231602-2 (Version None)
Quarter: 2012Q1

REPORT INFORMATION
  Report Type: 
  Country: None (occurrence: None)
  Receive Date: 20120323
  Receipt Date: 20120313
  Transmission Date: 20120608
  Serious: Yes (Other)
  Sender: FDA-Public Use
  Company Number: US-ELI_LILLY_AND_COMPANY-US201109006275

PATIENT
  Sex: Female

DRUGS (15)
  1. FORTEO [Suspect]
     Dosage: 20 UG, QD
     Route: 058
  2. FORTEO [Suspect]
     Dosage: 20 UG, QD
     Route: 058
  3. CALCIUM CARBONATE [Concomitant]
  4. PARCOPA [Concomitant]
     Dosage: 100 DF, QID
  5. COQ [Concomitant]
  6. FISH OIL [Concomitant]
     Dosage: 100 MG, QD
  7. ZETRA [Concomitant]
     Dosage: 10 MG, QD
  8. FORTEO [Suspect]
     Indication: OSTEOPOROSIS
     Dosage: 20 UG, QD
     Route: 058
     Dates: start: 20110709
  9. PRAVASTATIN [Concomitant]
     Dosage: 40 MG, QD
  10. FORTEO [Suspect]
     Dosage: 20 UG, QD
     Route: 058
  11. VITAMIN D [Concomitant]
  12. PARCOPA [Concomitant]
     Dosage: 25 DF, QID
  13. SELEKTINE [Concomitant]
  14. METFORMIN HCL [Concomitant]
     Dosage: 500 MG, BID
  15. RANITIDINE [Concomitant]
     Dosage: 150 MG, BID

REACTIONS (14)
  - PAIN IN EXTREMITY [None]
  - LETHARGY [None]
  - FEELING ABNORMAL [None]
  - BALANCE DISORDER [None]
  - BONE DISORDER [None]
  - MUSCULAR WEAKNESS [None]
  - MUSCULOSKELETAL PAIN [None]
  - JOINT EFFUSION [None]
  - ASTHENIA [None]
  - HEADACHE [None]
  - INJECTION SITE PAIN [None]
  - ABASIA [None]
  - DEVICE FAILURE [None]
  - ARTHRALGIA [None]
